FAERS Safety Report 7200219-0 (Version None)
Quarter: 2010Q4

REPORT INFORMATION
  Report Type: 
  Country: None (occurrence: None)
  Receive Date: 20101228
  Receipt Date: 20101222
  Transmission Date: 20110411
  Serious: Yes (Hospitalization)
  Sender: FDA-Public Use
  Company Number: A0892848A

PATIENT
  Sex: Male

DRUGS (2)
  1. AVANDIA [Suspect]
     Dosage: 8MG TWICE PER DAY
     Route: 048
  2. CRESTOR [Concomitant]

REACTIONS (14)
  - ABASIA [None]
  - AMNESIA [None]
  - ANGINA PECTORIS [None]
  - BLINDNESS [None]
  - CARDIAC DISORDER [None]
  - CEREBRAL HAEMORRHAGE [None]
  - CEREBROVASCULAR ACCIDENT [None]
  - CHEST PAIN [None]
  - COMA [None]
  - CORONARY ARTERY BYPASS [None]
  - CORONARY ARTERY DISEASE [None]
  - DISABILITY [None]
  - SINUS DISORDER [None]
  - WHEELCHAIR USER [None]
